FAERS Safety Report 8200365-9 (Version None)
Quarter: 2012Q1

REPORT INFORMATION
  Report Type: 
  Country: None (occurrence: None)
  Receive Date: 20120312
  Receipt Date: 20120302
  Transmission Date: 20120608
  Serious: Yes (Hospitalization)
  Sender: FDA-Public Use
  Company Number: CA-US-EMD SERONO, INC.-7113882

PATIENT
  Sex: Female

DRUGS (3)
  1. REBIF [Suspect]
     Indication: RELAPSING-REMITTING MULTIPLE SCLEROSIS
     Route: 058
     Dates: start: 20010827
  2. REBIF [Suspect]
     Route: 058
     Dates: start: 20120217
  3. GABAPENTIN [Concomitant]
     Indication: NEURALGIA
     Route: 048

REACTIONS (14)
  - INJECTION SITE INFECTION [None]
  - INJECTION SITE INDURATION [None]
  - WRONG TECHNIQUE IN DRUG USAGE PROCESS [None]
  - PRODUCT QUALITY ISSUE [None]
  - POLLAKIURIA [None]
  - INJECTION SITE WARMTH [None]
  - INJECTION SITE HAEMATOMA [None]
  - INJECTION SITE MASS [None]
  - PARAESTHESIA [None]
  - INJECTION SITE PAIN [None]
  - NAUSEA [None]
  - TREMOR [None]
  - INJECTION SITE HYPERSENSITIVITY [None]
  - INJECTION SITE ERYTHEMA [None]
